FAERS Safety Report 9464718 (Version 2)
Quarter: 2013Q3

REPORT INFORMATION
  Report Type: Report from Study
  Country: US (occurrence: US)
  Receive Date: 20130819
  Receipt Date: 20130819
  Transmission Date: 20140515
  Serious: Yes (Death, Other)
  Sender: FDA-Public Use
  Company Number: US-TEVA-407702USA

PATIENT
  Sex: Male

DRUGS (2)
  1. CLOZAPINE [Suspect]
     Indication: SCHIZOAFFECTIVE DISORDER
     Dosage: 25 MG QAM/75 MG NIGHTLY
     Route: 048
  2. PRESUMED OVERDOSE TO UNSPECIFIED MEDICATION [Suspect]

REACTIONS (3)
  - Completed suicide [Fatal]
  - Overdose [Fatal]
  - Lung neoplasm malignant [Unknown]
